FAERS Safety Report 14670250 (Version 1)
Quarter: 2018Q1

REPORT INFORMATION
  Report Type: Spontaneous
  Country: CA (occurrence: CA)
  Receive Date: 20180322
  Receipt Date: 20180322
  Transmission Date: 20180509
  Serious: Yes (Disabling)
  Sender: FDA-Public Use
  Company Number: CA-BAYER-2018-051722

PATIENT
  Age: 19 Year
  Sex: Female
  Weight: 40.8 kg

DRUGS (2)
  1. MIRENA [Suspect]
     Active Substance: LEVONORGESTREL
     Indication: CONTRACEPTION
  2. MIRENA [Suspect]
     Active Substance: LEVONORGESTREL
     Indication: CONTRACEPTION

REACTIONS (18)
  - Abdominal distension [Unknown]
  - Fatigue [Unknown]
  - Hot flush [Unknown]
  - Anxiety [Unknown]
  - Hypoaesthesia [Unknown]
  - Dyspepsia [Unknown]
  - Weight decreased [Unknown]
  - Dizziness [Unknown]
  - Dysaesthesia [Unknown]
  - Headache [Unknown]
  - Insomnia [Unknown]
  - Constipation [Unknown]
  - Depressive symptom [Unknown]
  - Adnexa uteri pain [Unknown]
  - Nausea [Unknown]
  - Decreased appetite [Unknown]
  - Acute stress disorder [Unknown]
  - Breast pain [Unknown]
